FAERS Safety Report 7499056-1 (Version None)
Quarter: 2011Q2

REPORT INFORMATION
  Report Type: 
  Country: None (occurrence: None)
  Receive Date: 20110524
  Receipt Date: 20110505
  Transmission Date: 20111010
  Serious: Yes (Other)
  Sender: FDA-Public Use
  Company Number: US-BAYER-2010-003279

PATIENT
  Age: 31 Year
  Sex: Female
  Weight: 70.295 kg

DRUGS (6)
  1. YAZ [Suspect]
     Indication: CONTRACEPTION
     Dosage: UNK
     Dates: start: 20060401, end: 20081101
  2. YASMIN [Suspect]
     Indication: ACNE
  3. YASMIN [Suspect]
     Indication: PREMENSTRUAL SYNDROME
  4. YAZ [Suspect]
     Indication: PREMENSTRUAL SYNDROME
  5. YAZ [Suspect]
     Indication: ACNE
  6. YASMIN [Suspect]
     Indication: CONTRACEPTION
     Dosage: UNK
     Dates: start: 20060401, end: 20081101

REACTIONS (2)
  - CEREBROVASCULAR ACCIDENT [None]
  - PAIN [None]
